FAERS Safety Report 6734057-X (Version None)
Quarter: 2010Q2

REPORT INFORMATION
  Report Type: 
  Country: None (occurrence: None)
  Receive Date: 20100518
  Receipt Date: 20100505
  Transmission Date: 20101027
  Serious: Yes (Other)
  Sender: FDA-Public Use
  Company Number: 7003963

PATIENT
  Age: 53 Year
  Sex: Male

DRUGS (1)
  1. REBIF [Suspect]
     Indication: MULTIPLE SCLEROSIS
     Dosage: 44 MCG, 3 IN 1 WK, SUBCUTANEOUS
     Route: 058
     Dates: start: 20081017

REACTIONS (6)
  - FATIGUE [None]
  - FEELING HOT [None]
  - HYPOKINESIA [None]
  - NO THERAPEUTIC RESPONSE [None]
  - SINUS DISORDER [None]
  - TEMPERATURE INTOLERANCE [None]
